FAERS Safety Report 17311039 (Version 1)
Quarter: 2020Q1

REPORT INFORMATION
  Report Type: Spontaneous
  Country: US (occurrence: US)
  Receive Date: 20200123
  Receipt Date: 20200123
  Transmission Date: 20200409
  Serious: No
  Sender: FDA-Public Use
  Company Number: US-ROCHE-2363930

PATIENT
  Sex: Male

DRUGS (1)
  1. RITUXAN [Suspect]
     Active Substance: RITUXIMAB
     Indication: PRODUCT USED FOR UNKNOWN INDICATION
     Route: 065
     Dates: start: 2006, end: 2006

REACTIONS (7)
  - Labyrinthitis [Unknown]
  - Pyrexia [Unknown]
  - Memory impairment [Unknown]
  - Headache [Unknown]
  - Malaise [Unknown]
  - Vertigo [Unknown]
  - Hypoacusis [Unknown]

NARRATIVE: CASE EVENT DATE: 2006
